FAERS Safety Report 7905239-6 (Version None)
Quarter: 2011Q4

REPORT INFORMATION
  Report Type: 
  Country: None (occurrence: None)
  Receive Date: 20111109
  Receipt Date: 20111102
  Transmission Date: 20120403
  Serious: Yes (Life-Threatening, Hospitalization, Other)
  Sender: FDA-Public Use
  Company Number: PHHY2011DE097389

PATIENT
  Age: 75 Year
  Sex: Male
  Weight: 97 kg

DRUGS (9)
  1. FURANTHRIL [Suspect]
     Dosage: 40 MG, QD
     Route: 048
     Dates: start: 20100201, end: 20110815
  2. HUMAN INSULIN [Concomitant]
     Indication: TYPE 2 DIABETES MELLITUS
     Dosage: UNK UKN, UNK
     Route: 058
     Dates: start: 19950101
  3. INSULIN BASAL [Concomitant]
     Indication: TYPE 2 DIABETES MELLITUS
     Dosage: UNK UKN, UNK
     Route: 058
     Dates: start: 19950101
  4. ALLOPURINOL [Suspect]
     Dosage: 150 MG, QD
     Route: 048
     Dates: start: 20070101, end: 20110815
  5. RAMIPRIL [Concomitant]
     Indication: HYPERTENSION
     Dosage: UNK UKN, UNK
     Route: 048
     Dates: start: 19950101, end: 20110815
  6. ESCOR [Concomitant]
     Indication: HYPERTENSION
     Dosage: 8 MG, QD
     Route: 048
     Dates: start: 19950101, end: 20110815
  7. LUCENTIS [Suspect]
     Indication: MACULAR DEGENERATION
     Dosage: 1 DF, UNK
     Dates: start: 20110707
  8. AVODART [Suspect]
     Indication: BENIGN PROSTATIC HYPERPLASIA
     Dosage: 0.5 MG, QD
     Route: 048
     Dates: start: 20090101, end: 20110815
  9. CLOPIDOGREL [Concomitant]
     Dosage: 75 MG, QD
     Route: 048
     Dates: start: 20000101

REACTIONS (4)
  - FIBRIN D DIMER INCREASED [None]
  - RENAL FAILURE ACUTE [None]
  - DYSPNOEA [None]
  - TUBULOINTERSTITIAL NEPHRITIS [None]
